FAERS Safety Report 5312850-8 (Version None)
Quarter: 2007Q2

REPORT INFORMATION
  Report Type: 
  Country: None (occurrence: None)
  Receive Date: 20070430
  Receipt Date: 20070425
  Transmission Date: 20071010
  Serious: Yes (Hospitalization)
  Sender: FDA-Public Use
  Company Number: JP-ABBOTT-07P-087-0365425-00

PATIENT
  Age: 44 Year
  Sex: Female
  Weight: 65 kg

DRUGS (2)
  1. CYCLOSPORINE [Suspect]
     Indication: BEHCET'S SYNDROME
     Route: 065
     Dates: start: 19940101, end: 20010801
  2. CYCLOSPORINE [Suspect]
     Dates: start: 20010801

REACTIONS (1)
  - CEREBRAL TOXOPLASMOSIS [None]
